FAERS Safety Report 6505149-5 (Version None)
Quarter: 2009Q4

REPORT INFORMATION
  Report Type: 
  Country: None (occurrence: None)
  Receive Date: 20091218
  Receipt Date: 20091209
  Transmission Date: 20100525
  Serious: Yes (Other)
  Sender: FDA-Public Use
  Company Number: PHHY2009CA43548

PATIENT
  Sex: Female

DRUGS (2)
  1. ACLASTA [Suspect]
     Indication: OSTEOPOROSIS
     Dosage: UNK
     Dates: start: 20080930
  2. ACLASTA [Suspect]
     Dosage: UNK
     Dates: start: 20090101

REACTIONS (2)
  - HEAD INJURY [None]
  - SYNCOPE [None]
